FAERS Safety Report 6005239-X (Version None)
Quarter: 2008Q4

REPORT INFORMATION
  Report Type: 
  Country: None (occurrence: None)
  Receive Date: 20081216
  Receipt Date: 20071220
  Transmission Date: 20090506
  Serious: No
  Sender: FDA-Public Use
  Company Number: US-AMGEN-KDL255213

PATIENT
  Sex: Male
  Weight: 138.5 kg

DRUGS (5)
  1. ENBREL [Suspect]
     Indication: PSORIASIS
     Route: 058
     Dates: start: 20050401
  2. CALCIPOTRIENE [Concomitant]
  3. BETAMETHASONE DIPROPIONATE [Concomitant]
     Dates: start: 20060706
  4. HYDROCORTISONE ACETATE [Concomitant]
     Dates: start: 20060214
  5. DOVONEX [Concomitant]
     Dates: start: 20030108, end: 20060706

REACTIONS (1)
  - HERPES ZOSTER [None]
